FAERS Safety Report 7391542-8 (Version None)
Quarter: 2011Q2

REPORT INFORMATION
  Report Type: 
  Country: None (occurrence: None)
  Receive Date: 20110404
  Receipt Date: 20110323
  Transmission Date: 20111010
  Serious: Yes (Disabling)
  Sender: FDA-Public Use
  Company Number: JP-BAYER-201010827BYL

PATIENT
  Age: 75 Year
  Sex: Female

DRUGS (5)
  1. URSO 250 [Concomitant]
     Dosage: 300 MG (DAILY DOSE), , ORAL
     Route: 048
     Dates: start: 20090625
  2. MEVALOTIN [Concomitant]
     Dosage: 10 MG (DAILY DOSE), , ORAL
     Route: 048
     Dates: start: 20090625
  3. METHYCOBAL [Concomitant]
     Dosage: 0.5 MG (DAILY DOSE), , ORAL
     Route: 048
     Dates: start: 20090625
  4. RIVOTRIL [Concomitant]
     Dosage: 0.5 DF (DAILY DOSE), , ORAL
     Route: 048
     Dates: start: 20090625
  5. NEXAVAR [Suspect]
     Indication: RENAL CELL CARCINOMA
     Dosage: 400 MG (DAILY DOSE), , ORAL
     Route: 048
     Dates: start: 20090618, end: 20090723

REACTIONS (1)
  - HEPATIC FUNCTION ABNORMAL [None]
